FAERS Safety Report 8158257 (Version 2)
Quarter: 2012Q4

REPORT INFORMATION
  Report Type: 
  Country: US (occurrence: US)
  Receive Date: 20110927
  Receipt Date: 20121015
  Transmission Date: 20130627
  Serious: Yes (Death)
  Sender: FDA-Public Use
  Company Number: PHEH2011US04899

PATIENT
  Sex: Female
  Weight: 54.48 kg

DRUGS (1)
  1. ZOMETA [Suspect]
     Dosage: UNK UKN, UNK
     Route: 065

REACTIONS (2)
  - Infection [Fatal]
  - Disease progression [Fatal]
